FAERS Safety Report 25972125 (Version 2)
Quarter: 2025Q4

REPORT INFORMATION
  Report Type: Spontaneous
  Country: EU (occurrence: EU)
  Receive Date: 20251029
  Receipt Date: 20251107
  Transmission Date: 20260117
  Serious: Yes (Hospitalization, Other)
  Sender: TORRENT PHARMA INC.
  Company Number: None

PATIENT
  Sex: Male
  Weight: 78 kg

DRUGS (1)
  1. METFORMIN [Suspect]
     Active Substance: METFORMIN HYDROCHLORIDE
     Indication: Type 2 diabetes mellitus
     Dosage: 1-0-1 (500)
     Route: 065
     Dates: start: 20220906, end: 20250621

REACTIONS (4)
  - Visual impairment [Recovered/Resolved]
  - Diplopia [Recovered/Resolved]
  - Loss of personal independence in daily activities [Recovered/Resolved]
  - VIth nerve paralysis [Unknown]
